FAERS Safety Report 12502604 (Version 1)
Quarter: 2016Q2

REPORT INFORMATION
  Report Type: Spontaneous
  Country: AU (occurrence: AU)
  Receive Date: 20160627
  Receipt Date: 20160627
  Transmission Date: 20160815
  Serious: Yes (Other)
  Sender: FDA-Public Use
  Company Number: PHHY2016AU085422

PATIENT

DRUGS (4)
  1. FLUORO URACIL [Concomitant]
     Active Substance: FLUOROURACIL
     Indication: HEPATIC NEOPLASM
     Route: 065
  2. OXALIPLATIN. [Suspect]
     Active Substance: OXALIPLATIN
     Indication: HEPATIC NEOPLASM
     Route: 065
  3. CAPECITABINE. [Suspect]
     Active Substance: CAPECITABINE
     Indication: RECTAL ADENOCARCINOMA
     Dosage: 2000 MG, BID
     Route: 065
  4. LEUCOVORIN. [Concomitant]
     Active Substance: LEUCOVORIN
     Indication: HEPATIC NEOPLASM
     Route: 065

REACTIONS (2)
  - Myelofibrosis [Recovered/Resolved]
  - Acute promyelocytic leukaemia [Recovered/Resolved]
